FAERS Safety Report 9716596 (Version 1)
Quarter: 2013Q4

REPORT INFORMATION
  Report Type: Spontaneous
  Country: US (occurrence: US)
  Receive Date: 20131127
  Receipt Date: 20131127
  Transmission Date: 20140711
  Serious: Yes (Other)
  Sender: FDA-Public Use
  Company Number: US-PFIZER INC-2013338623

PATIENT
  Age: 60 Year
  Sex: Female
  Weight: 113.38 kg

DRUGS (2)
  1. GEODON [Suspect]
     Indication: DEPRESSION
     Dosage: 80 MG, 2X/DAY
     Route: 048
     Dates: end: 201310
  2. SEROQUEL [Concomitant]
     Indication: HALLUCINATION, AUDITORY
     Dosage: UNK

REACTIONS (1)
  - Depression [Not Recovered/Not Resolved]
